FAERS Safety Report 16543896 (Version 2)
Quarter: 2019Q3

REPORT INFORMATION
  Report Type: Spontaneous
  Country: DK (occurrence: DK)
  Receive Date: 20190709
  Receipt Date: 20190718
  Transmission Date: 20191004
  Serious: Yes (Other)
  Sender: FDA-Public Use
  Company Number: DK-PFIZER INC-2019284855

PATIENT
  Age: 45 Year
  Sex: Male

DRUGS (3)
  1. CLADRIBINE. [Suspect]
     Active Substance: CLADRIBINE
     Indication: HISTIOCYTIC SARCOMA
     Dosage: UNK
     Route: 065
     Dates: start: 201901, end: 201904
  2. CYTARABINE. [Suspect]
     Active Substance: CYTARABINE
     Indication: HISTIOCYTIC SARCOMA
     Dosage: UNK
     Route: 065
     Dates: start: 201901, end: 201904
  3. MITOXANTRONE [Suspect]
     Active Substance: MITOXANTRONE HYDROCHLORIDE
     Indication: HISTIOCYTIC SARCOMA
     Dosage: UNK
     Route: 065
     Dates: start: 201901, end: 201904

REACTIONS (4)
  - Off label use [Unknown]
  - Second primary malignancy [Unknown]
  - Acute myeloid leukaemia [Unknown]
  - Product use in unapproved indication [Unknown]

NARRATIVE: CASE EVENT DATE: 2019
